FAERS Safety Report 19415714 (Version 4)
Quarter: 2021Q3

REPORT INFORMATION
  Report Type: Spontaneous
  Country: US (occurrence: US)
  Receive Date: 20210615
  Receipt Date: 20210706
  Transmission Date: 20211014
  Serious: No
  Sender: FDA-Public Use
  Company Number: US-TEVA-2021-US-1919835

PATIENT
  Sex: Female

DRUGS (3)
  1. AUSTEDO [Suspect]
     Active Substance: DEUTETRABENAZINE
     Indication: TARDIVE DYSKINESIA
     Dosage: 12 MILLIGRAM DAILY;
     Route: 065
     Dates: start: 20210227
  2. AUSTEDO [Suspect]
     Active Substance: DEUTETRABENAZINE
     Dosage: 24 MILLIGRAM DAILY;
     Route: 065
     Dates: start: 202105
  3. AUSTEDO [Suspect]
     Active Substance: DEUTETRABENAZINE
     Dosage: 18 MILLIGRAM DAILY;
     Route: 065

REACTIONS (11)
  - Fall [Unknown]
  - Dysphemia [Unknown]
  - Drug ineffective [Unknown]
  - Gait disturbance [Unknown]
  - Parkinsonism [Unknown]
  - Dyspnoea [Unknown]
  - Incorrect dosage administered [Unknown]
  - Somnolence [Unknown]
  - Initial insomnia [Unknown]
  - Vocal cord dysfunction [Unknown]
  - Hypokinesia [Unknown]

NARRATIVE: CASE EVENT DATE: 202105
